FAERS Safety Report 6424238-7 (Version None)
Quarter: 2009Q4

REPORT INFORMATION
  Report Type: 
  Country: None (occurrence: None)
  Receive Date: 20091102
  Receipt Date: 20091021
  Transmission Date: 20100525
  Serious: Yes (Hospitalization, Disabling)
  Sender: FDA-Public Use
  Company Number: ES-PFIZER INC-2009286178

PATIENT
  Age: 10 Year
  Sex: Male
  Weight: 48 kg

DRUGS (1)
  1. SOMATROPIN [Suspect]
     Indication: HYPOPITUITARISM
     Dosage: 8.4 MG, WEEKLY
     Route: 058
     Dates: start: 20041111, end: 20061001

REACTIONS (2)
  - BRAIN STEM GLIOMA [None]
  - NEOPLASM RECURRENCE [None]
